FAERS Safety Report 9490168 (Version 1)
Quarter: 2013Q3

REPORT INFORMATION
  Report Type: Spontaneous
  Country: US (occurrence: US)
  Receive Date: 20130830
  Receipt Date: 20130830
  Transmission Date: 20140515
  Serious: Yes (Hospitalization, Other)
  Sender: FDA-Public Use
  Company Number: US-AMGEN-USASP2013060022

PATIENT
  Age: 50 Year
  Sex: Male

DRUGS (4)
  1. ENBREL [Suspect]
     Indication: PSORIATIC ARTHROPATHY
     Dosage: 50 MG, QWK
     Route: 065
     Dates: start: 20060905
  2. ENBREL [Suspect]
     Indication: PSORIASIS
  3. CORTISONE [Suspect]
     Indication: PRODUCT USED FOR UNKNOWN INDICATION
     Dosage: UNK
     Route: 065
  4. METHADONE [Suspect]
     Indication: PRODUCT USED FOR UNKNOWN INDICATION
     Dosage: UNK
     Route: 065

REACTIONS (14)
  - Fall [Recovered/Resolved]
  - Hip fracture [Recovered/Resolved]
  - Respiratory failure [Recovered/Resolved]
  - Procedural complication [Recovered/Resolved]
  - Walking aid user [Not Recovered/Not Resolved]
  - Wheelchair user [Not Recovered/Not Resolved]
  - Apnoea [Recovered/Resolved]
  - Cataract [Recovered/Resolved]
  - Rib fracture [Recovered/Resolved]
  - Skin plaque [Not Recovered/Not Resolved]
  - Joint stiffness [Not Recovered/Not Resolved]
  - Food allergy [Unknown]
  - Immune system disorder [Unknown]
  - Vomiting [Recovered/Resolved]
